FAERS Safety Report 10706600 (Version 1)
Quarter: 2015Q1

REPORT INFORMATION
  Report Type: Report from Study
  Country: US (occurrence: US)
  Receive Date: 20150113
  Receipt Date: 20150113
  Transmission Date: 20150721
  Serious: Yes (Hospitalization)
  Sender: FDA-Public Use
  Company Number: PHEH2015US000485

PATIENT
  Age: 43 Year
  Sex: Male
  Weight: 69.84 kg

DRUGS (6)
  1. ALPRAZOLAM. [Concomitant]
     Active Substance: ALPRAZOLAM
     Indication: PRODUCT USED FOR UNKNOWN INDICATION
     Route: 065
  2. LEVETIRACETAM. [Concomitant]
     Active Substance: LEVETIRACETAM
     Indication: PRODUCT USED FOR UNKNOWN INDICATION
     Route: 065
  3. METHYLPREDNISOLONE SODIUM SUCCINATE. [Concomitant]
     Active Substance: METHYLPREDNISOLONE SODIUM SUCCINATE
     Indication: PRODUCT USED FOR UNKNOWN INDICATION
     Dosage: PRN
     Route: 065
  4. PHENYTOIN SODIUM. [Concomitant]
     Active Substance: PHENYTOIN SODIUM
     Indication: PRODUCT USED FOR UNKNOWN INDICATION
     Route: 065
  5. GILENYA [Suspect]
     Active Substance: FINGOLIMOD HYDROCHLORIDE
     Indication: MULTIPLE SCLEROSIS
     Dosage: 0.5 MG, QD
     Route: 048
     Dates: end: 20140721
  6. PANTOPRAZOLE SODIUM [Concomitant]
     Active Substance: PANTOPRAZOLE SODIUM
     Indication: PRODUCT USED FOR UNKNOWN INDICATION
     Route: 065

REACTIONS (15)
  - Epilepsy [Unknown]
  - Diplopia [Unknown]
  - Tandem gait test abnormal [Unknown]
  - Loss of consciousness [Unknown]
  - Multiple sclerosis [Unknown]
  - Amnesia [Unknown]
  - Urinary incontinence [Unknown]
  - Muscular weakness [Unknown]
  - Depression [Unknown]
  - Central nervous system lesion [Unknown]
  - Status epilepticus [Unknown]
  - Ataxia [Unknown]
  - Speech disorder [Unknown]
  - Hoffmann^s sign [Unknown]
  - Extensor plantar response [Unknown]

NARRATIVE: CASE EVENT DATE: 201401
